FAERS Safety Report 20611806 (Version 1)
Quarter: 2022Q1

REPORT INFORMATION
  Report Type: Spontaneous
  Country: US (occurrence: US)
  Receive Date: 20220318
  Receipt Date: 20220318
  Transmission Date: 20220423
  Serious: No
  Sender: FDA-Public Use
  Company Number: US-009507513-2203USA005976

PATIENT
  Sex: Female

DRUGS (2)
  1. KEYTRUDA [Suspect]
     Active Substance: PEMBROLIZUMAB
     Dosage: UNK
  2. LENVATINIB MESYLATE [Suspect]
     Active Substance: LENVATINIB MESYLATE
     Indication: Endometrial cancer
     Dosage: 10 MILLIGRAM DAILY
     Route: 048
     Dates: start: 20211201

REACTIONS (10)
  - Skin exfoliation [Unknown]
  - Muscle fatigue [Unknown]
  - Limb discomfort [Unknown]
  - Somnolence [Unknown]
  - Nasal dryness [Unknown]
  - Hypophagia [Unknown]
  - Feeling hot [Unknown]
  - Dry skin [Unknown]
  - Dry mouth [Unknown]
  - Nausea [Unknown]

NARRATIVE: CASE EVENT DATE: 20211201
